FAERS Safety Report 14126232 (Version 1)
Quarter: 2017Q4

REPORT INFORMATION
  Report Type: Spontaneous
  Country: US (occurrence: US)
  Receive Date: 20171025
  Receipt Date: 20171025
  Transmission Date: 20180321
  Serious: No
  Sender: FDA-Public Use
  Company Number: US-009507513-1710USA012216

PATIENT
  Age: 66 Year
  Sex: Male

DRUGS (1)
  1. KEYTRUDA [Suspect]
     Active Substance: PEMBROLIZUMAB
     Indication: NEOPLASM MALIGNANT
     Dosage: EVERY 3 WEEKS
     Route: 042
     Dates: start: 201707

REACTIONS (2)
  - Pupillary reflex impaired [Unknown]
  - Pupillary disorder [Unknown]

NARRATIVE: CASE EVENT DATE: 201710
